FAERS Safety Report 23730569 (Version 3)
Quarter: 2024Q4

REPORT INFORMATION
  Report Type: Spontaneous
  Country: JP (occurrence: JP)
  Receive Date: 20240411
  Receipt Date: 20241017
  Transmission Date: 20250115
  Serious: Yes (Hospitalization, Disabling, Other)
  Sender: GILEAD
  Company Number: JP-GILEAD-2024-0668777

PATIENT
  Age: 46 Year
  Sex: Male
  Weight: 60.7 kg

DRUGS (3)
  1. TRUVADA [Suspect]
     Active Substance: EMTRICITABINE\TENOFOVIR DISOPROXIL FUMARATE
     Indication: HIV infection
     Dosage: 1 DOSAGE FORM
     Route: 048
     Dates: start: 20100728, end: 20170523
  2. DESCOVY [Suspect]
     Active Substance: EMTRICITABINE\TENOFOVIR ALAFENAMIDE FUMARATE
     Indication: HIV infection
     Dosage: 1 DOSAGE FORM
     Route: 048
     Dates: start: 20170524, end: 20240625
  3. TIVICAY [Concomitant]
     Active Substance: DOLUTEGRAVIR SODIUM
     Indication: HIV infection
     Dosage: 1 DOSAGE FORM
     Route: 048
     Dates: start: 20140604, end: 20240625

REACTIONS (1)
  - Osteonecrosis [Recovered/Resolved with Sequelae]

NARRATIVE: CASE EVENT DATE: 20231101
